FAERS Safety Report 4553224-7 (Version None)
Quarter: 2005Q1

REPORT INFORMATION
  Report Type: 
  Country: None (occurrence: None)
  Receive Date: 20050113
  Receipt Date: 20041004
  Transmission Date: 20050727
  Serious: Yes (Hospitalization, Disabling)
  Sender: FDA-Public Use
  Company Number: 8008465

PATIENT
  Age: 38 Year
  Sex: Female
  Weight: 64 kg

DRUGS (3)
  1. KEPPRA [Suspect]
     Indication: EPILEPSY
     Dosage: 500 MG 4/D PO
     Route: 048
     Dates: start: 20040401
  2. CARBAMAZEPINE [Concomitant]
  3. EUGYNON [Concomitant]

REACTIONS (3)
  - BURNING SENSATION [None]
  - DYSPHAGIA [None]
  - SENSATION OF FOREIGN BODY [None]
